FAERS Safety Report 6101768-9 (Version None)
Quarter: 2009Q1

REPORT INFORMATION
  Report Type: 
  Country: None (occurrence: None)
  Receive Date: 20090227
  Receipt Date: 20080425
  Transmission Date: 20090719
  Serious: Yes (Other)
  Sender: FDA-Public Use
  Company Number: 248700

PATIENT
  Age: 8 Year
  Sex: Male

DRUGS (11)
  1. NUTROPIN AQ [Suspect]
     Indication: GROWTH RETARDATION
     Dosage: 1 MG, QD
     Dates: start: 20051101
  2. THALIDOMIDE [Concomitant]
  3. LEFLUNOMIDE [Concomitant]
  4. FOSAMAX [Concomitant]
  5. REMICADE [Concomitant]
  6. PREDNISOLONE [Concomitant]
  7. STEROIDS (STEROID NOS) [Concomitant]
  8. METHOTREXATE [Concomitant]
  9. HUMIRA [Concomitant]
  10. KINERET [Concomitant]
  11. VIOXX [Concomitant]

REACTIONS (1)
  - BENIGN INTRACRANIAL HYPERTENSION [None]
